FAERS Safety Report 4851384-1 (Version None)
Quarter: 2005Q4

REPORT INFORMATION
  Report Type: 
  Country: None (occurrence: None)
  Receive Date: 20051208
  Receipt Date: 20051125
  Transmission Date: 20060501
  Serious: Yes (Hospitalization)
  Sender: FDA-Public Use
  Company Number: ACO_0194_2005

PATIENT
  Age: 62 Year
  Sex: Female

DRUGS (8)
  1. SIRDALUD [Suspect]
     Indication: MUSCLE SPASMS
     Dosage: 6 MG QDAY PO
     Route: 048
  2. VALTREX [Suspect]
     Indication: HERPES SIMPLEX
     Dosage: 1 G QDAY PO
     Route: 048
     Dates: start: 20050921, end: 20050922
  3. HALCION [Suspect]
     Indication: SLEEP DISORDER
     Dosage: 0.25 MG QDAY PO
     Route: 048
  4. UROSIN [Suspect]
     Indication: HYPERURICAEMIA
     Dosage: 100 MG QDAY PO
     Route: 048
  5. PANTOPRAZOLE SODIUM [Suspect]
     Indication: GASTRIC ULCER
     Dosage: 40 MG QDAY PO
     Route: 048
  6. CAL D-VITA [Concomitant]
  7. NEURONTIN [Concomitant]
  8. EVISTA [Concomitant]

REACTIONS (8)
  - C-REACTIVE PROTEIN INCREASED [None]
  - DRUG ERUPTION [None]
  - DRY EYE [None]
  - NEURALGIA [None]
  - ORAL INFECTION [None]
  - PAIN [None]
  - PYREXIA [None]
  - RASH GENERALISED [None]
